FAERS Safety Report 4420971-7 (Version None)
Quarter: 2004Q2

REPORT INFORMATION
  Report Type: 
  Country: None (occurrence: None)
  Receive Date: 20040621
  Receipt Date: 20040312
  Transmission Date: 20050107
  Serious: Yes (Death)
  Sender: FDA-Public Use
  Company Number: A-US2002-00706

PATIENT
  Age: 3 Year
  Sex: Male
  Weight: 14.7 kg

DRUGS (11)
  1. TRACLEER [Suspect]
     Indication: PULMONARY HYPERTENSION
     Dosage: 31.25 MG, QD,; 31.25 MG, BID, ORAL
     Route: 048
     Dates: start: 20020801, end: 20020918
  2. TRACLEER [Suspect]
     Indication: PULMONARY HYPERTENSION
     Dosage: 31.25 MG, QD,; 31.25 MG, BID, ORAL
     Route: 048
     Dates: start: 20021016, end: 20030107
  3. LASIX [Concomitant]
  4. DIGOXIN [Concomitant]
  5. ENALAPRIL MALEATE [Concomitant]
  6. PRILOSEC [Concomitant]
  7. REGLAN [Concomitant]
  8. COENZYME Q10 [Concomitant]
  9. VITAMIN B COMPLEX CAP [Concomitant]
  10. POTASSIUM CHLORIDE [Concomitant]
  11. VASOTEC [Concomitant]

REACTIONS (5)
  - ABDOMINAL DISTENSION [None]
  - ABDOMINAL PAIN [None]
  - FLATULENCE [None]
  - LOOSE STOOLS [None]
  - PULMONARY HYPERTENSION [None]
